FAERS Safety Report 15727826 (Version 1)
Quarter: 2018Q4

REPORT INFORMATION
  Report Type: Spontaneous
  Country: US (occurrence: US)
  Receive Date: 20181217
  Receipt Date: 20181217
  Transmission Date: 20190205
  Serious: No
  Sender: FDA-Public Use
  Company Number: US-PFIZER INC-2018516840

PATIENT
  Age: 65 Year
  Sex: Female

DRUGS (1)
  1. GENOTROPIN MQ [Suspect]
     Active Substance: SOMATROPIN
     Dosage: 0.4 MG, UNK

REACTIONS (10)
  - Blood growth hormone decreased [Unknown]
  - Mean cell haemoglobin concentration decreased [Unknown]
  - High density lipoprotein increased [Unknown]
  - Haematocrit decreased [Unknown]
  - Platelet count increased [Unknown]
  - Aspartate aminotransferase increased [Unknown]
  - Insulin-like growth factor decreased [Unknown]
  - Blood glucose increased [Unknown]
  - Red blood cell count decreased [Unknown]
  - Blood thyroid stimulating hormone increased [Unknown]
